FAERS Safety Report 8828863 (Version 1)
Quarter: 2012Q4

REPORT INFORMATION
  Report Type: 
  Country: MX (occurrence: MX)
  Receive Date: 20121008
  Receipt Date: 20121008
  Transmission Date: 20130627
  Serious: Yes (Hospitalization, Other)
  Sender: FDA-Public Use
  Company Number: MX-SANOFI-AVENTIS-2012SA071659

PATIENT
  Age: 65 Year
  Sex: Male
  Weight: 89 kg

DRUGS (6)
  1. OROXADIN [Suspect]
     Indication: HYPERTRIGLYCERIDEMIA
     Route: 048
     Dates: start: 2011
  2. OROXADIN [Suspect]
     Indication: HYPERCHOLESTEROLEMIA
     Route: 048
     Dates: start: 2011
  3. AMARYL [Suspect]
     Indication: TYPE 2 DIABETES MELLITUS
     Route: 048
     Dates: start: 2011
  4. TAMSULOSIN [Concomitant]
     Route: 048
     Dates: start: 2010
  5. LOSARTAN [Concomitant]
     Indication: HYPERTENSION ARTERIAL
     Route: 048
     Dates: start: 2006
  6. EUTIROX [Concomitant]
     Indication: HYPOTHYROIDISM
     Route: 048
     Dates: start: 2002

REACTIONS (4)
  - Venous thrombosis [Recovered/Resolved]
  - Hypertriglyceridaemia [Not Recovered/Not Resolved]
  - Hypercholesterolaemia [Recovered/Resolved]
  - Hyperglycaemia [Not Recovered/Not Resolved]
